FAERS Safety Report 7025101-3 (Version None)
Quarter: 2010Q3

REPORT INFORMATION
  Report Type: 
  Country: None (occurrence: None)
  Receive Date: 20100929
  Receipt Date: 20100916
  Transmission Date: 20110219
  Serious: Yes (Hospitalization)
  Sender: FDA-Public Use
  Company Number: ALA_00789_2010

PATIENT
  Sex: Female

DRUGS (6)
  1. ROWASA [Suspect]
     Indication: COLITIS ULCERATIVE
     Dosage: (DF ORAL)
     Route: 048
     Dates: start: 20091106
  2. IMUREL /00001501/ (IMUREL) (NOT SPECIFIED) [Suspect]
     Indication: COLITIS ULCERATIVE
     Dosage: (DF ORAL)
     Route: 048
     Dates: start: 20091106
  3. PENTASA (PENTASA) (NOT SPECIFIED) [Suspect]
     Indication: COLITIS ULCERATIVE
     Dosage: (DF RECTAL)
     Route: 054
     Dates: start: 20091106
  4. FOLIC ACID [Concomitant]
  5. TIMOFEROL [Concomitant]
  6. SALBUTAMOL [Concomitant]

REACTIONS (3)
  - CAESAREAN SECTION [None]
  - DRUG EXPOSURE DURING PREGNANCY [None]
  - GESTATIONAL DIABETES [None]
